FAERS Safety Report 8469697-3 (Version None)
Quarter: 2012Q2

REPORT INFORMATION
  Report Type: 
  Country: None (occurrence: None)
  Receive Date: 20120626
  Receipt Date: 20120614
  Transmission Date: 20120825
  Serious: Yes (Hospitalization)
  Sender: FDA-Public Use
  Company Number: IE-FRI-1000036597

PATIENT
  Age: 41 Year
  Sex: Male

DRUGS (1)
  1. ESCITALOPRAM [Suspect]
     Dosage: 15 MG
     Route: 048

REACTIONS (3)
  - GRAND MAL CONVULSION [None]
  - RHABDOMYOLYSIS [None]
  - HYPONATRAEMIA [None]
